FAERS Safety Report 7204491-2 (Version None)
Quarter: 2010Q4

REPORT INFORMATION
  Report Type: 
  Country: None (occurrence: None)
  Receive Date: 20101230
  Receipt Date: 20101220
  Transmission Date: 20110411
  Serious: Yes (Other)
  Sender: FDA-Public Use
  Company Number: US-WATSON-2010-16234

PATIENT
  Age: 46 Year
  Sex: Male
  Weight: 122.73 kg

DRUGS (2)
  1. ANDRODERM [Suspect]
     Indication: PRODUCT USED FOR UNKNOWN INDICATION
     Dosage: UNKNOWN, DAILY
     Route: 062
     Dates: start: 20090101
  2. ANDROGEL [Suspect]
     Indication: PRODUCT USED FOR UNKNOWN INDICATION
     Dosage: UNKNOWN, DAILY
     Route: 061
     Dates: start: 20090101

REACTIONS (3)
  - CONVULSION [None]
  - INTENTIONAL DRUG MISUSE [None]
  - LOSS OF CONSCIOUSNESS [None]
